FAERS Safety Report 9101367 (Version 1)
Quarter: 2013Q1

REPORT INFORMATION
  Report Type: Report from Study
  Country: FR (occurrence: FR)
  Receive Date: 20130218
  Receipt Date: 20130218
  Transmission Date: 20140127
  Serious: Yes (Hospitalization)
  Sender: FDA-Public Use
  Company Number: FR-ROCHE-1070984

PATIENT
  Age: 54 Year
  Sex: Female
  Weight: 65 kg

DRUGS (5)
  1. TOCILIZUMAB [Suspect]
     Indication: RHEUMATOID ARTHRITIS
     Dosage: TOTAL MONTHLY DOSE: 560MG
     Route: 042
     Dates: start: 20120306, end: 20120403
  2. METHOTREXATE [Concomitant]
     Route: 048
     Dates: start: 201103
  3. CORTANCYL [Concomitant]
     Route: 048
  4. CORTANCYL [Concomitant]
     Route: 065
     Dates: start: 20120820
  5. RITUXIMAB [Concomitant]
     Route: 065

REACTIONS (2)
  - Face oedema [Recovered/Resolved]
  - Erythema [Recovered/Resolved]
